FAERS Safety Report 7842352 (Version 3)
Quarter: 2012Q4

REPORT INFORMATION
  Report Type: 
  Country: US (occurrence: US)
  Receive Date: 20110304
  Receipt Date: 20120913
  Transmission Date: 20130627
  Serious: Yes (Other)
  Sender: FDA-Public Use
  Company Number: US-ELI_LILLY_AND_COMPANY-US201102006058

PATIENT
  Sex: Male

DRUGS (3)
  1. CIALIS [Suspect]
     Indication: ERECTILE DYSFUNCTION
     Dosage: 10 mg, as needed
     Dates: start: 200706
  2. CIALIS [Suspect]
     Dosage: 20 mg, prn
  3. NITROGLYCERIN [Concomitant]

REACTIONS (7)
  - Prostate cancer [Not Recovered/Not Resolved]
  - Photopsia [Not Recovered/Not Resolved]
  - Dry eye [Not Recovered/Not Resolved]
  - Flushing [Recovered/Resolved]
  - Headache [Recovered/Resolved]
  - Underdose [Unknown]
  - Prostate cancer recurrent [None]
